FAERS Safety Report 6090773-7 (Version None)
Quarter: 2009Q1

REPORT INFORMATION
  Report Type: 
  Country: None (occurrence: None)
  Receive Date: 20090223
  Receipt Date: 20090217
  Transmission Date: 20090719
  Serious: Yes (Hospitalization)
  Sender: FDA-Public Use
  Company Number: US025278

PATIENT
  Age: 63 Year
  Sex: Male
  Weight: 79.8 kg

DRUGS (11)
  1. BENDAMUSTINE [Suspect]
     Indication: LYMPHOMA
     Dosage: 180 MG QD INTRAVENOUS
     Route: 042
     Dates: start: 20090107, end: 20090107
  2. BENDAMUSTINE [Suspect]
     Indication: LYMPHOMA
     Dosage: 180 MG QD INTRAVENOUS
     Route: 042
     Dates: start: 20090211, end: 20090211
  3. BORTEZOMIB [Concomitant]
  4. RITUXIMAB [Concomitant]
  5. ZOFRAN [Concomitant]
  6. COMPAZINE /00013302/ [Concomitant]
  7. TYLENOL /00724201/ [Concomitant]
  8. MEPRAZOL [Concomitant]
  9. SIMVASTATIN [Concomitant]
  10. PROZAC [Concomitant]
  11. ASPIRIN [Concomitant]

REACTIONS (4)
  - DIARRHOEA [None]
  - HYPOTENSION [None]
  - OEDEMA PERIPHERAL [None]
  - TUMOUR LYSIS SYNDROME [None]
